FAERS Safety Report 14660670 (Version 3)
Quarter: 2018Q2

REPORT INFORMATION
  Report Type: Spontaneous
  Country: JP (occurrence: JP)
  Receive Date: 20180320
  Receipt Date: 20180516
  Transmission Date: 20180711
  Serious: Yes (Hospitalization, Other)
  Sender: FDA-Public Use
  Company Number: JP-GLAXOSMITHKLINE-JP2018JPN042765

PATIENT
  Age: 8 Decade
  Sex: Female

DRUGS (1)
  1. SERETIDE [Suspect]
     Active Substance: FLUTICASONE PROPIONATE\SALMETEROL XINAFOATE
     Dosage: 1000 ?G, BID
     Route: 055

REACTIONS (4)
  - Femur fracture [Unknown]
  - Product use issue [Unknown]
  - Overdose [Unknown]
  - Product dosage form confusion [Unknown]
